FAERS Safety Report 7928651-8 (Version None)
Quarter: 2011Q4

REPORT INFORMATION
  Report Type: 
  Country: None (occurrence: None)
  Receive Date: 20111118
  Receipt Date: 20111114
  Transmission Date: 20120403
  Serious: Yes (Hospitalization)
  Sender: FDA-Public Use
  Company Number: ES-ABBOTT-11P-144-0873869-00

PATIENT
  Age: 48 Year
  Sex: Male

DRUGS (3)
  1. HUMIRA [Suspect]
     Route: 058
  2. HUMIRA [Suspect]
     Indication: PSORIASIS
     Route: 058
     Dates: start: 20110701, end: 20110701
  3. HUMIRA [Suspect]
     Route: 058

REACTIONS (7)
  - CHOLESTASIS [None]
  - HYPERTRANSAMINASAEMIA [None]
  - HEPATITIS ACUTE [None]
  - CYTOMEGALOVIRUS INFECTION [None]
  - INFLUENZA [None]
  - HEPATIC FUNCTION ABNORMAL [None]
  - SMOOTH MUSCLE ANTIBODY POSITIVE [None]
